FAERS Safety Report 9425190 (Version 2)
Quarter: 2013Q4

REPORT INFORMATION
  Report Type: Spontaneous
  Country: GB (occurrence: None)
  Receive Date: 20130725
  Receipt Date: 20131104
  Transmission Date: 20140711
  Serious: Yes (Other)
  Sender: FDA-Public Use
  Company Number: AUR-APL-2013-05976

PATIENT
  Age: 61 Year
  Sex: Female
  Weight: 166 kg

DRUGS (10)
  1. SERTRALINE (SERTRALINE) [Suspect]
     Indication: DEPRESSION
     Route: 048
  2. COD LIVER OIL [Concomitant]
  3. ESTRADIOL (ESTRADIOL) (GEL) [Concomitant]
  4. FLIXONASE AQUEOUS (FLUTICASONE PROPIONATE) [Concomitant]
  5. LEVOTHYROXINE SODIUM (LEVOTHYROXINE SODIUM) [Concomitant]
  6. MONTELUKAST [Concomitant]
  7. OMEPRAZOLE (OMEPRAZOLE) [Concomitant]
  8. PROCHLORPERAZINE MALEATE (PROCHLORPERAZINE MALEATE) [Concomitant]
  9. SALBUTAMOL (SALBUTAMOL) [Concomitant]
  10. SYMBICORT (BUDESONIDE W / FORMOTEROL FUMARATE) [Concomitant]

REACTIONS (7)
  - Gastrointestinal disorder [None]
  - Fatigue [None]
  - Gastroenteritis norovirus [None]
  - Insomnia [None]
  - Psychomotor hyperactivity [None]
  - Speech disorder [None]
  - Restlessness [None]
